FAERS Safety Report 4358621-0 (Version None)
Quarter: 2004Q2

REPORT INFORMATION
  Report Type: 
  Country: None (occurrence: None)
  Receive Date: 20040512
  Receipt Date: 20040512
  Transmission Date: 20050107
  Serious: Yes (Hospitalization)
  Sender: FDA-Public Use
  Company Number: None

PATIENT
  Age: 66 Year
  Sex: Male
  Weight: 78 kg

DRUGS (8)
  1. VALIUM [Suspect]
     Indication: ANXIETY
     Dosage: VALIUM 5 MG BID
  2. AMBIEN [Suspect]
     Indication: INSOMNIA
     Dosage: AMBIEN 10 MG HS
  3. BENASTERIDE [Concomitant]
  4. CARDURA [Concomitant]
  5. EPOGEN [Concomitant]
  6. ZAROXOLYN [Concomitant]
  7. METOPROLOL [Concomitant]
  8. ZOFRAN [Concomitant]

REACTIONS (3)
  - HYPOTENSION [None]
  - OXYGEN SATURATION DECREASED [None]
  - RESPIRATORY DEPRESSION [None]
